FAERS Safety Report 21875362 (Version 2)
Quarter: 2023Q2

REPORT INFORMATION
  Report Type: Spontaneous
  Country: US (occurrence: US)
  Receive Date: 20230118
  Receipt Date: 20230504
  Transmission Date: 20230722
  Serious: Yes (Hospitalization)
  Sender: FDA-Public Use
  Company Number: US-BRISTOL-MYERS SQUIBB COMPANY-2023-007771

PATIENT
  Age: 86 Year
  Sex: Female
  Weight: 65.8 kg

DRUGS (32)
  1. ELIQUIS [Suspect]
     Active Substance: APIXABAN
     Indication: Cerebrovascular accident prophylaxis
     Route: 048
     Dates: start: 20160915
  2. ELIQUIS [Suspect]
     Active Substance: APIXABAN
  3. METOPROLOL TARTRATE [Concomitant]
     Active Substance: METOPROLOL TARTRATE
     Indication: Product used for unknown indication
     Dosage: WITH FOOD, ORALLY, TWICE A DAY, 30 DAYS, 30 TABLET, REFILLS 5
     Route: 048
  4. ASPIRIN [Concomitant]
     Active Substance: ASPIRIN
     Indication: Coronary artery disease
     Dosage: DOSE: 81 MG 1 ORAL DELAYED RELEASE TABLET ORALLY DAILY
     Route: 048
  5. ASPIRIN [Concomitant]
     Active Substance: ASPIRIN
     Route: 048
  6. ACETAMINOPHEN [Concomitant]
     Active Substance: ACETAMINOPHEN
     Indication: Prophylaxis
     Dosage: DOSE: 650 MG 2 TABLETS ORALLY Q4HR FOR PRN
     Route: 048
  7. DEXTROSE [Concomitant]
     Active Substance: DEXTROSE\DEXTROSE MONOHYDRATE
     Indication: Prophylaxis
     Dosage: DEXTROSE 10% IN WATER. DOSE: 250 ML IV
     Route: 042
  8. DEXTROSE [Concomitant]
     Active Substance: DEXTROSE\DEXTROSE MONOHYDRATE
     Dosage: DEXTROSE 50% IN WATER INJECTION (12.5 G) DOSE: 25 ML IV PUSH Q15MINS, PRN FOR PREVENTION
     Route: 042
  9. GLUCAGON [Concomitant]
     Active Substance: GLUCAGON
     Indication: Prophylaxis
     Dosage: GLUCAGON 1 MG= 1 ML INTRAMUSCULAR AS INDICATED, PRN FOR PREVENTION
     Route: 030
  10. GLUCAGON [Concomitant]
     Active Substance: GLUCAGON
     Dosage: Q1HR, PRN
     Route: 048
  11. HYDRALAZINE [Concomitant]
     Active Substance: HYDRALAZINE HYDROCHLORIDE
     Indication: Prophylaxis
     Dosage: IV PUSH, Q2HR, PRN
     Route: 042
  12. LEVEMIR [Concomitant]
     Active Substance: INSULIN DETEMIR
     Indication: Prophylaxis
     Dosage: STRENGTH: 100 UNITS/ML SUBCUTANEOUS SOLUTION DOSE: 14 UNITS SUBCUTANEOUS AT BEDTIME
     Route: 058
  13. LEVEMIR [Concomitant]
     Active Substance: INSULIN DETEMIR
     Indication: Type 2 diabetes mellitus
  14. LIPITOR [Concomitant]
     Active Substance: ATORVASTATIN CALCIUM
     Indication: Product used for unknown indication
     Route: 048
  15. MECLIZINE [Concomitant]
     Active Substance: MECLIZINE HYDROCHLORIDE
     Indication: Prophylaxis
     Dosage: TID, PRN
     Route: 048
  16. MECLIZINE [Concomitant]
     Active Substance: MECLIZINE HYDROCHLORIDE
     Indication: Vertigo
  17. MIRALAX [Concomitant]
     Active Substance: POLYETHYLENE GLYCOL 3350
     Indication: Prophylaxis
     Dosage: DOSE=17 G (1 PACKET) ORAL DAILY
     Route: 048
  18. TUMS [Concomitant]
     Active Substance: CALCIUM CARBONATE
     Indication: Prophylaxis
     Dosage: Q4HR, PRN
     Route: 048
  19. ZOFRAN [Concomitant]
     Active Substance: ONDANSETRON HYDROCHLORIDE
     Indication: Prophylaxis
     Dosage: 4 MG- 2 ML, IV PUSH, Q6HR, PRN
     Route: 042
  20. HUMALOG [Concomitant]
     Active Substance: INSULIN LISPRO
     Indication: Product used for unknown indication
     Dosage: DOSE: 14 UNITS SUBCUTANEOUS DAILY
     Route: 058
  21. LISINOPRIL [Concomitant]
     Active Substance: LISINOPRIL
     Indication: Product used for unknown indication
     Route: 048
  22. NOVOLOG [Concomitant]
     Active Substance: INSULIN ASPART
     Indication: Type 2 diabetes mellitus
     Dosage: STRENGTH: 100 UNITS/ML INJECTABLE SOLUTION DOSE: 14 UNITS SUBCUTANEOUS TIDAC
     Route: 058
  23. SYNTHROID [Concomitant]
     Active Substance: LEVOTHYROXINE SODIUM
     Indication: Product used for unknown indication
     Route: 048
  24. CYANOCOBALAMIN [Concomitant]
     Active Substance: CYANOCOBALAMIN
     Indication: Product used for unknown indication
     Dosage: EXTENDED RELEASE TABLET
     Route: 048
  25. HAIR SKIN NAILS [Concomitant]
     Indication: Product used for unknown indication
     Dosage: 3 CAPS ORALLY DAILY
     Route: 048
  26. MINERALS\VITAMINS [Concomitant]
     Active Substance: MINERALS\VITAMINS
     Indication: Product used for unknown indication
     Dosage: ORALLY QD
     Route: 048
  27. LANTUS [Concomitant]
     Active Substance: INSULIN GLARGINE
     Indication: Product used for unknown indication
     Dosage: 100 UNIT/ML
     Route: 058
  28. LEVOTHYROXINE SODIUM [Concomitant]
     Active Substance: LEVOTHYROXINE SODIUM
     Indication: Product used for unknown indication
     Dosage: 1 TABLET ON AN EMPTY STOMACH IN THE MORNING, ONCE A DAY
     Route: 048
  29. ATORVASTATIN CALCIUM [Concomitant]
     Active Substance: ATORVASTATIN CALCIUM
     Indication: Product used for unknown indication
     Route: 048
  30. TYLENOL PM [Concomitant]
     Active Substance: ACETAMINOPHEN\DIPHENHYDRAMINE
     Indication: Product used for unknown indication
     Dosage: 500-25 MG, 1 TABLET AT BEDTIME AS NEEDED, ONCE A DAY
     Route: 048
  31. STOOL SOFTENER (DOCUSATE) [Concomitant]
     Active Substance: DOCUSATE
     Indication: Product used for unknown indication
  32. MECLIZINE HYDROCHLORIDE [Concomitant]
     Active Substance: MECLIZINE HYDROCHLORIDE
     Indication: Product used for unknown indication
     Dosage: CHEWABLE 1 TABLET AS NEEDED EVERY 12 HRS
     Route: 048

REACTIONS (8)
  - Dizziness [Recovering/Resolving]
  - Nausea [Recovering/Resolving]
  - Fall [Recovering/Resolving]
  - Coccydynia [Recovering/Resolving]
  - Balance disorder [Recovering/Resolving]
  - Hypoaesthesia [Recovered/Resolved]
  - Stress [Recovering/Resolving]
  - Off label use [Unknown]

NARRATIVE: CASE EVENT DATE: 20220712
